FAERS Safety Report 25063054 (Version 1)
Quarter: 2025Q1

REPORT INFORMATION
  Report Type: Report from Study
  Country: US (occurrence: US)
  Receive Date: 20250311
  Receipt Date: 20250311
  Transmission Date: 20250409
  Serious: Yes (Death, Other)
  Sender: RANBAXY
  Company Number: US-SUN PHARMACEUTICAL INDUSTRIES LTD-2025R1-498014

PATIENT
  Age: 45 Year
  Sex: Female

DRUGS (2)
  1. HYDROCHLOROTHIAZIDE [Suspect]
     Active Substance: HYDROCHLOROTHIAZIDE
     Indication: Giant cell arteritis
     Route: 065
  2. PREDNISONE [Suspect]
     Active Substance: PREDNISONE
     Indication: Giant cell arteritis
     Dosage: 40 MILLIGRAM, DAILY
     Route: 048

REACTIONS (5)
  - Condition aggravated [Fatal]
  - Pulmonary hypertension [Unknown]
  - Hyperglycaemia [Unknown]
  - Osteoporosis [Unknown]
  - Compression fracture [Unknown]
